FAERS Safety Report 18701387 (Version 1)
Quarter: 2021Q1

REPORT INFORMATION
  Report Type: Report from Study
  Country: US (occurrence: US)
  Receive Date: 20210105
  Receipt Date: 20210105
  Transmission Date: 20210419
  Serious: Yes (Hospitalization)
  Sender: FDA-Public Use
  Company Number: US-BAYER-2020-288171

PATIENT
  Age: 40 Year
  Sex: Male

DRUGS (1)
  1. NEXAVAR [Suspect]
     Active Substance: SORAFENIB
     Dosage: 400 MG, QD AT BEDTIME
     Route: 048
     Dates: start: 20201217, end: 202012

REACTIONS (3)
  - Laboratory test abnormal [Not Recovered/Not Resolved]
  - Off label use [None]
  - Localised infection [Not Recovered/Not Resolved]

NARRATIVE: CASE EVENT DATE: 20201217
